FAERS Safety Report 7475721-7 (Version None)
Quarter: 2011Q2

REPORT INFORMATION
  Report Type: 
  Country: None (occurrence: None)
  Receive Date: 20110512
  Receipt Date: 20110510
  Transmission Date: 20111010
  Serious: Yes (Other)
  Sender: FDA-Public Use
  Company Number: US-PFIZER INC-2011100550

PATIENT
  Sex: Male
  Weight: 82 kg

DRUGS (2)
  1. CHANTIX [Suspect]
     Dosage: 1 MG, 2X/DAY
     Dates: start: 20110101, end: 20110401
  2. CHANTIX [Suspect]
     Indication: SMOKING CESSATION THERAPY
     Dosage: 0.5 MG, 1X/DAY
     Route: 048
     Dates: start: 20110301, end: 20110101

REACTIONS (5)
  - AGGRESSION [None]
  - PARANOIA [None]
  - DEPRESSION [None]
  - VIOLENCE-RELATED SYMPTOM [None]
  - NERVOUSNESS [None]
